FAERS Safety Report 4602351-4 (Version None)
Quarter: 2005Q2

REPORT INFORMATION
  Report Type: 
  Country: None (occurrence: None)
  Receive Date: 20050223
  Receipt Date: 20041102
  Transmission Date: 20051028
  Serious: No
  Sender: FDA-Public Use
  Company Number: PHEH2004US09238

PATIENT
  Age: 55 Year
  Sex: Female
  Weight: 88.9 kg

DRUGS (3)
  1. ZELNORM [Suspect]
     Indication: CONSTIPATION
     Dosage: 6 MG, BID, ORAL
     Route: 048
     Dates: start: 20040825
  2. ACIPHEX [Concomitant]
  3. ZYRTEC [Concomitant]

REACTIONS (1)
  - PAIN OF SKIN [None]
